FAERS Safety Report 12905521 (Version 1)
Quarter: 2016Q4

REPORT INFORMATION
  Report Type: Spontaneous
  Country: JP (occurrence: JP)
  Receive Date: 20161103
  Receipt Date: 20161103
  Transmission Date: 20170207
  Serious: Yes (Other)
  Sender: FDA-Public Use
  Company Number: JP-ORION CORPORATION ORION PHARMA-ENTC2016-0629

PATIENT
  Age: 77 Year
  Sex: Female

DRUGS (8)
  1. ARICEPT [Concomitant]
     Active Substance: DONEPEZIL HYDROCHLORIDE
     Route: 065
  2. STALEVO [Suspect]
     Active Substance: CARBIDOPA\ENTACAPONE\LEVODOPA
     Indication: PARKINSON^S DISEASE
     Dosage: STRENGTH: 100/10/100 MG
     Route: 048
  3. LEVODOPA [Concomitant]
     Active Substance: LEVODOPA
     Route: 065
  4. STALEVO [Suspect]
     Active Substance: CARBIDOPA\ENTACAPONE\LEVODOPA
     Route: 048
  5. TRERIEF [Concomitant]
     Active Substance: ZONISAMIDE
     Route: 065
  6. BETANIS [Concomitant]
     Active Substance: MIRABEGRON
     Route: 065
  7. NEOXY [Concomitant]
     Active Substance: OXYBUTYNIN CHLORIDE
     Route: 065
  8. RIVOTRIL [Concomitant]
     Active Substance: CLONAZEPAM
     Route: 065

REACTIONS (3)
  - Dementia [Unknown]
  - Fall [Recovered/Resolved]
  - Nocturia [Unknown]
